FAERS Safety Report 5430103-4 (Version None)
Quarter: 2007Q3

REPORT INFORMATION
  Report Type: 
  Country: None (occurrence: None)
  Receive Date: 20070829
  Receipt Date: 20070822
  Transmission Date: 20080115
  Serious: Yes (Other)
  Sender: FDA-Public Use
  Company Number: US-MERCK-0706USA00051

PATIENT
  Age: 36 Year
  Sex: Female

DRUGS (6)
  1. SINGULAIR [Suspect]
     Indication: ASTHMA
     Route: 048
     Dates: end: 20070604
  2. PULMICORT [Concomitant]
  3. RHINOCORT [Concomitant]
  4. ALBUTEROL [Concomitant]
  5. VITAMINS (UNSPECIFIED) [Concomitant]
     Route: 065
  6. ASCORBIC ACID [Concomitant]
     Route: 048

REACTIONS (2)
  - DRUG EXPOSURE DURING PREGNANCY [None]
  - PROLONGED PREGNANCY [None]
